FAERS Safety Report 5967530-2 (Version None)
Quarter: 2008Q4

REPORT INFORMATION
  Report Type: 
  Country: None (occurrence: None)
  Receive Date: 20081125
  Receipt Date: 20081113
  Transmission Date: 20090506
  Serious: Yes (Death)
  Sender: FDA-Public Use
  Company Number: FR-PFIZER INC-2008096477

PATIENT
  Sex: Female

DRUGS (1)
  1. ZYVOXID [Suspect]
     Indication: PERITONITIS

REACTIONS (2)
  - DEATH [None]
  - PATHOGEN RESISTANCE [None]
